FAERS Safety Report 4393924-5 (Version None)
Quarter: 2004Q3

REPORT INFORMATION
  Report Type: 
  Country: None (occurrence: None)
  Receive Date: 20040702
  Receipt Date: 20040622
  Transmission Date: 20050211
  Serious: Yes (Other)
  Sender: FDA-Public Use
  Company Number: BIVUS040051

PATIENT
  Age: 60 Year
  Sex: Male

DRUGS (2)
  1. ANGIOMAX [Suspect]
     Indication: ANTICOAGULANT THERAPY
     Dosage: 0.75 MG/KG, BOLUS, IV BOLUS; SEE IMAGE
     Route: 040
     Dates: start: 20040601, end: 20040601
  2. ANGIOMAX [Suspect]
     Indication: STENT PLACEMENT
     Dosage: 0.75 MG/KG, BOLUS, IV BOLUS; SEE IMAGE
     Route: 040
     Dates: start: 20040601, end: 20040601

REACTIONS (6)
  - CATHETER RELATED COMPLICATION [None]
  - COAGULATION TIME SHORTENED [None]
  - CORONARY ARTERY EMBOLISM [None]
  - ELECTROCARDIOGRAM ST SEGMENT ELEVATION [None]
  - MEDICATION ERROR [None]
  - THROMBOSIS [None]
